FAERS Safety Report 7788740-8 (Version None)
Quarter: 2011Q3

REPORT INFORMATION
  Report Type: 
  Country: None (occurrence: None)
  Receive Date: 20110930
  Receipt Date: 20110915
  Transmission Date: 20111222
  Serious: Yes (Hospitalization, Disabling)
  Sender: FDA-Public Use
  Company Number: PT-JNJFOC-20110800950

PATIENT
  Age: 46 Year
  Sex: Male

DRUGS (8)
  1. ENBREL [Suspect]
     Indication: PRODUCT USED FOR UNKNOWN INDICATION
     Dates: start: 20060101, end: 20101001
  2. ALLOPURINOL [Concomitant]
  3. HUMIRA [Suspect]
     Indication: PRODUCT USED FOR UNKNOWN INDICATION
     Dates: start: 20101201, end: 20110301
  4. SIMPONI [Suspect]
     Route: 058
     Dates: start: 20110713
  5. ANTI-INFLAMMATORY DRUG [Concomitant]
  6. VOLTAREN [Concomitant]
  7. METHOTREXATE [Concomitant]
     Indication: SPONDYLOARTHROPATHY
  8. SIMPONI [Suspect]
     Indication: PRODUCT USED FOR UNKNOWN INDICATION
     Route: 058
     Dates: start: 20110501

REACTIONS (1)
  - DEMYELINATION [None]
